FAERS Safety Report 21337308 (Version 1)
Quarter: 2022Q3

REPORT INFORMATION
  Report Type: Spontaneous
  Country: CZ (occurrence: CZ)
  Receive Date: 20220915
  Receipt Date: 20220915
  Transmission Date: 20221026
  Serious: Yes (Other)
  Sender: FDA-Public Use
  Company Number: None

PATIENT
  Age: 33 Year
  Sex: Female
  Weight: 70 kg

DRUGS (1)
  1. LOCOID [Suspect]
     Active Substance: HYDROCORTISONE BUTYRATE
     Indication: Dermatitis atopic
     Dosage: IRREGULAR USING, SHE NEVER USED IT VERY OFTEN OR ON THE WHOLE BODY
     Route: 003
     Dates: start: 2003, end: 2021

REACTIONS (8)
  - Eczema [Recovering/Resolving]
  - Topical steroid withdrawal reaction [Recovering/Resolving]
  - Ocular hyperaemia [Recovering/Resolving]
  - Chills [Recovered/Resolved]
  - Pruritus [Recovering/Resolving]
  - Flushing [Recovering/Resolving]
  - Insomnia [Unknown]
  - Eye swelling [Recovering/Resolving]

NARRATIVE: CASE EVENT DATE: 20210901
